FAERS Safety Report 9567681 (Version 1)
Quarter: 2013Q3

REPORT INFORMATION
  Report Type: Spontaneous
  Country: US (occurrence: US)
  Receive Date: 20130930
  Receipt Date: 20130930
  Transmission Date: 20140515
  Serious: No
  Sender: FDA-Public Use
  Company Number: US-AMGEN-USASP2013002150

PATIENT
  Age: 54 Year
  Sex: Female
  Weight: 68.03 kg

DRUGS (13)
  1. ENBREL [Suspect]
     Indication: RHEUMATOID ARTHRITIS
     Dosage: 50 MG, QWK
     Route: 058
  2. CYMBALTA [Concomitant]
     Dosage: 30 MG, UNK
  3. PLAQUENIL                          /00072602/ [Concomitant]
     Dosage: 200 MG, UNK
  4. PREMARIN [Concomitant]
     Dosage: 0.625 MG, UNK
  5. VICODIN ES [Concomitant]
     Dosage: 7.5-750
  6. GABAPENTIN [Concomitant]
     Dosage: 400 MG, UNK
  7. LISINOPRIL [Concomitant]
     Dosage: 10 MG, UNK
  8. OMEPRAZOLE [Concomitant]
     Dosage: 20 MG, UNK
  9. LUNESTA [Concomitant]
     Dosage: 2 MG, UNK
  10. FLEXERIL                           /00428402/ [Concomitant]
     Dosage: 5 MG, UNK
  11. AMITIZA [Concomitant]
     Dosage: 8 MUG, UNK
  12. FOLIC ACID [Concomitant]
     Dosage: UNK
  13. METHOTREXATE [Concomitant]
     Dosage: 1 G, UNK

REACTIONS (4)
  - Hypotension [Unknown]
  - Pulse abnormal [Unknown]
  - Injection site bruising [Unknown]
  - Injection site pain [Unknown]
